FAERS Safety Report 13944143 (Version 1)
Quarter: 2017Q3

REPORT INFORMATION
  Report Type: Spontaneous
  Country: US (occurrence: US)
  Receive Date: 20170907
  Receipt Date: 20170907
  Transmission Date: 20171128
  Serious: No
  Sender: FDA-Public Use
  Company Number: US-ROCHE-1355267

PATIENT
  Sex: Male
  Weight: 96.25 kg

DRUGS (1)
  1. RITUXAN [Suspect]
     Active Substance: RITUXIMAB
     Indication: PRODUCT USED FOR UNKNOWN INDICATION
     Route: 042

REACTIONS (4)
  - Infusion site pain [Recovered/Resolved]
  - Chills [Unknown]
  - Injection site extravasation [Unknown]
  - Swelling [Recovered/Resolved]
